FAERS Safety Report 11713620 (Version 2)
Quarter: 2017Q3

REPORT INFORMATION
  Report Type: Report from Study
  Country: TR (occurrence: TR)
  Receive Date: 20151109
  Receipt Date: 20170726
  Transmission Date: 20171127
  Serious: Yes (Other)
  Sender: FDA-Public Use
  Company Number: TR-SUN PHARMACEUTICAL INDUSTRIES LTD-2015R1-105530

PATIENT
  Age: 18 Month
  Sex: Female

DRUGS (1)
  1. TRIAMCINOLONE [Suspect]
     Active Substance: TRIAMCINOLONE
     Indication: HAEMANGIOMA
     Dosage: 2 MG/KG FOR 2-5 INJECTIONS AT MONTHLY INTERVALS
     Route: 026

REACTIONS (2)
  - Adrenal suppression [Unknown]
  - Therapeutic response decreased [Unknown]
